FAERS Safety Report 15980421 (Version 1)
Quarter: 2019Q1

REPORT INFORMATION
  Report Type: Report from Study
  Country: US (occurrence: US)
  Receive Date: 20190219
  Receipt Date: 20190219
  Transmission Date: 20190418
  Serious: Yes (Other)
  Sender: FDA-Public Use
  Company Number: US-PFIZER INC-2019072906

PATIENT
  Age: 57 Year
  Sex: Female

DRUGS (1)
  1. IBRANCE [Suspect]
     Active Substance: PALBOCICLIB
     Indication: BREAST CANCER
     Dosage: 75 MG, CYCLIC, (21 DAYS, THEN 7 DAYS OFF FOR 28 DAY CYCLE)
     Route: 048
     Dates: start: 201805

REACTIONS (4)
  - Asthenia [Unknown]
  - Fatigue [Unknown]
  - Rash [Recovering/Resolving]
  - Bone marrow failure [Unknown]
